FAERS Safety Report 7420222-5 (Version None)
Quarter: 2011Q2

REPORT INFORMATION
  Report Type: 
  Country: None (occurrence: None)
  Receive Date: 20110407
  Receipt Date: 20110330
  Transmission Date: 20111010
  Serious: Yes (Hospitalization)
  Sender: FDA-Public Use
  Company Number: 2011SP010550

PATIENT
  Age: 49 Year
  Sex: Male

DRUGS (10)
  1. ROCEPHIN /00672202/ [Concomitant]
  2. ZOVIRAX [Concomitant]
  3. VICILLIN [Concomitant]
  4. MUSCULAX (VECURONIUM BROMIDE /00600002/) [Suspect]
     Indication: NEUROMUSCULAR BLOCKING THERAPY
     Dosage: IV
     Route: 042
     Dates: start: 20110224
  5. ISOTONIC SODIUM CHLORIDE SOLUTION [Concomitant]
  6. VANCOMYCIN [Concomitant]
  7. FENTANYL [Concomitant]
  8. SUXAMETHONIUM /00057702/ [Concomitant]
  9. DIPRIVAN [Concomitant]
  10. OMEPRAL [Concomitant]

REACTIONS (3)
  - RENAL FAILURE [None]
  - DIALYSIS [None]
  - RHABDOMYOLYSIS [None]
